FAERS Safety Report 8915766 (Version 1)
Quarter: 2012Q4

REPORT INFORMATION
  Report Type: 
  Country: US (occurrence: US)
  Receive Date: 20121119
  Receipt Date: 20121119
  Transmission Date: 20130627
  Serious: No
  Sender: FDA-Public Use
  Company Number: US-PFIZER INC-2012287453

PATIENT
  Age: 50 Year
  Sex: Male
  Weight: 86.17 kg

DRUGS (4)
  1. EFFEXOR XR [Suspect]
     Indication: DEPRESSION
     Dosage: 150 mg, 1x/day
     Route: 048
     Dates: start: 201202
  2. TRUVADA [Concomitant]
     Indication: HIV DISEASE
     Dosage: UNK
  3. ISENTRESS [Concomitant]
     Indication: HIV DISEASE
     Dosage: UNK
  4. VALCYTE [Concomitant]
     Indication: HIV DISEASE
     Dosage: UNK

REACTIONS (5)
  - Drug dose omission [Unknown]
  - Discomfort [Unknown]
  - Dizziness [Unknown]
  - Motion sickness [Unknown]
  - Paraesthesia [Unknown]
